FAERS Safety Report 4409932-1 (Version None)
Quarter: 2004Q3

REPORT INFORMATION
  Report Type: 
  Country: None (occurrence: None)
  Receive Date: 20040728
  Receipt Date: 20040716
  Transmission Date: 20050211
  Serious: Yes (Other)
  Sender: FDA-Public Use
  Company Number: JP-GLAXOSMITHKLINE-B0339807A

PATIENT
  Sex: Female
  Weight: 2.25 kg

DRUGS (1)
  1. ZOVIRAX [Suspect]
     Dosage: 4.5MGK THREE TIMES PER DAY

REACTIONS (3)
  - DRUG EXPOSURE DURING PREGNANCY [None]
  - FOETAL DISTRESS SYNDROME [None]
  - PLATELET COUNT DECREASED [None]
